FAERS Safety Report 7538022-4 (Version None)
Quarter: 2011Q2

REPORT INFORMATION
  Report Type: 
  Country: None (occurrence: None)
  Receive Date: 20110609
  Receipt Date: 20110527
  Transmission Date: 20111010
  Serious: Yes (Other)
  Sender: FDA-Public Use
  Company Number: PHHY2011RU47155

PATIENT
  Age: 61 Year
  Sex: Female

DRUGS (3)
  1. ZOMETA [Suspect]
     Dosage: UNK
     Dates: start: 20110215
  2. ZOMETA [Suspect]
     Indication: BREAST CANCER
     Dosage: UNK, 4.0 (5.0 ML) EVERY MONTH
  3. ARIMIDEX [Concomitant]
     Dosage: ONE TABLET DAILY

REACTIONS (7)
  - OSTEONECROSIS OF JAW [None]
  - GINGIVAL BLEEDING [None]
  - ORAL DISORDER [None]
  - MUCOSAL EROSION [None]
  - TOOTH EROSION [None]
  - PURULENCE [None]
  - GENERAL PHYSICAL HEALTH DETERIORATION [None]
